FAERS Safety Report 5399784-8 (Version None)
Quarter: 2007Q3

REPORT INFORMATION
  Report Type: 
  Country: None (occurrence: None)
  Receive Date: 20070730
  Receipt Date: 20070717
  Transmission Date: 20080115
  Serious: Yes (Hospitalization)
  Sender: FDA-Public Use
  Company Number: DE-JNJFOC-20070505423

PATIENT
  Age: 45 Year
  Sex: Female

DRUGS (10)
  1. REMICADE [Suspect]
     Indication: RHEUMATOID ARTHRITIS
     Route: 042
  2. METHOTREXATE [Suspect]
     Indication: RHEUMATOID ARTHRITIS
  3. DECORTIN [Suspect]
     Indication: RHEUMATOID ARTHRITIS
  4. LEFLUNOMIDE [Suspect]
     Indication: DRUG USE FOR UNKNOWN INDICATION
  5. ADALIMUMAB [Concomitant]
  6. ADALIMUMAB [Concomitant]
     Dosage: 40 MG/ 480 MG
  7. ADALIMUMAB [Concomitant]
     Dosage: 40 MG/ 240 MG
  8. ADALIMUMAB [Concomitant]
     Indication: DRUG USE FOR UNKNOWN INDICATION
  9. DICLOFENAC SODIUM [Concomitant]
  10. VITAMIN D [Concomitant]

REACTIONS (2)
  - PNEUMONIA [None]
  - SEROMA [None]
